FAERS Safety Report 10256309 (Version 1)
Quarter: 2014Q2

REPORT INFORMATION
  Report Type: Spontaneous
  Country: RO (occurrence: RO)
  Receive Date: 20140624
  Receipt Date: 20140624
  Transmission Date: 20141212
  Serious: Yes (Other)
  Sender: FDA-Public Use
  Company Number: RO-ACTAVIS-2014-13501

PATIENT
  Age: 60 Year
  Sex: Female

DRUGS (7)
  1. DOCETAXEL ACTAVIS [Suspect]
     Indication: BREAST CANCER
     Dosage: 140 MG, UNK
     Route: 042
     Dates: start: 20140606, end: 20140606
  2. DEXAMETHASONE [Concomitant]
     Indication: PREMEDICATION
     Dosage: 9 AMPOULES
     Route: 065
  3. ARNETIN [Concomitant]
     Indication: PREMEDICATION
     Dosage: 2 AMPOULES
     Route: 065
  4. OSETRON [Concomitant]
     Indication: PREMEDICATION
     Dosage: 2 AMPOULES
     Route: 065
  5. LORATADINE [Concomitant]
     Indication: PREMEDICATION
     Dosage: 2 DF, UNK
     Route: 065
  6. HYDROCORTISONE HEMISUCCINATE [Concomitant]
     Indication: PREMEDICATION
     Dosage: UNK
     Route: 065
  7. INSULIN [Concomitant]
     Indication: DIABETES MELLITUS
     Dosage: UNK
     Route: 065

REACTIONS (4)
  - Respiratory failure [Recovered/Resolved]
  - Erythema [Recovered/Resolved]
  - Agitation [Recovered/Resolved]
  - Back pain [Recovered/Resolved]
